FAERS Safety Report 15880878 (Version 2)
Quarter: 2019Q1

REPORT INFORMATION
  Report Type: Spontaneous
  Country: US (occurrence: US)
  Receive Date: 20190128
  Receipt Date: 20190321
  Transmission Date: 20190417
  Serious: No
  Sender: FDA-Public Use
  Company Number: US-BAUSCH-BL-2019-002165

PATIENT
  Sex: Female

DRUGS (1)
  1. UCERIS [Suspect]
     Active Substance: BUDESONIDE
     Indication: COLITIS
     Route: 061
     Dates: start: 201808

REACTIONS (2)
  - No adverse event [Unknown]
  - Inappropriate schedule of product administration [Unknown]
